FAERS Safety Report 5079550-3 (Version None)
Quarter: 2006Q3

REPORT INFORMATION
  Report Type: 
  Country: None (occurrence: None)
  Receive Date: 20060811
  Receipt Date: 20060811
  Transmission Date: 20061208
  Serious: Yes (Hospitalization)
  Sender: FDA-Public Use
  Company Number: None

PATIENT
  Age: 60 Year
  Sex: Male
  Weight: 66.6788 kg

DRUGS (10)
  1. FLUOROURACIL [Suspect]
     Indication: NEOPLASM MALIGNANT
     Dosage: 600MG/M2  IV
     Route: 042
     Dates: start: 20060122, end: 20060408
  2. DOCETAXEL [Suspect]
     Indication: NEOPLASM MALIGNANT
     Dosage: 18.75 MG/M2
     Dates: start: 20060122, end: 20060403
  3. ALLOPURINOL [Concomitant]
  4. DILTIAZEM HCL [Concomitant]
  5. DUCOSATE NA [Concomitant]
  6. LISINOPRIL [Concomitant]
  7. METOPROLOL TARTRATE [Concomitant]
  8. OMEPRAZOLE [Concomitant]
  9. PENTOXIFYLLINE SA [Concomitant]
  10. COMPAZINE [Concomitant]

REACTIONS (8)
  - CLUBBING [None]
  - CYANOSIS [None]
  - DYSPHAGIA [None]
  - DYSPHONIA [None]
  - DYSPNOEA [None]
  - OEDEMA [None]
  - OEDEMA PERIPHERAL [None]
  - OXYGEN SATURATION DECREASED [None]
